FAERS Safety Report 21860532 (Version 10)
Quarter: 2024Q3

REPORT INFORMATION
  Report Type: Report from Study
  Country: KR (occurrence: KR)
  Receive Date: 20230113
  Receipt Date: 20240805
  Transmission Date: 20241016
  Serious: Yes (Hospitalization)
  Sender: NOVARTIS
  Company Number: KR-002147023-NVSC2023KR007059

PATIENT
  Sex: Female

DRUGS (10)
  1. LUTATHERA [Suspect]
     Active Substance: LUTETIUM OXODOTREOTIDE LU-177
     Indication: Gastroenteropancreatic neuroendocrine tumour disease
     Dosage: 7.4 GBQ, UNKNOWN
     Route: 042
     Dates: start: 20221124, end: 20221124
  2. LUTATHERA [Suspect]
     Active Substance: LUTETIUM OXODOTREOTIDE LU-177
     Dosage: 7.4 GBQ, UNKNOWN
     Route: 042
     Dates: start: 20230209, end: 20230209
  3. LUTATHERA [Suspect]
     Active Substance: LUTETIUM OXODOTREOTIDE LU-177
     Dosage: 7.4 GBQ, UNKNOWN
     Route: 042
     Dates: start: 20230413, end: 20230413
  4. LUTATHERA [Suspect]
     Active Substance: LUTETIUM OXODOTREOTIDE LU-177
     Dosage: 7.4 GBQ, UNKNOWN
     Route: 042
     Dates: start: 20230706, end: 20230706
  5. LUTATHERA [Suspect]
     Active Substance: LUTETIUM OXODOTREOTIDE LU-177
     Dosage: 7.4 GBQ, UNKNOWN
     Route: 042
     Dates: start: 20240711
  6. URSODIOL [Concomitant]
     Active Substance: URSODIOL
     Indication: Product used for unknown indication
     Dosage: UNK, TID (3 TIMES A DAY)
     Route: 048
  7. FEROBA-YOU [Concomitant]
     Indication: Mineral supplementation
     Dosage: UNK UNK, BID (SUSTAINED RELEASE)
     Route: 048
  8. TASNA [Concomitant]
     Indication: Product used for unknown indication
     Dosage: UNK, BID (2 TIMES A DAY)
     Route: 048
  9. PANTOPRAZOLE SODIUM [Concomitant]
     Active Substance: PANTOPRAZOLE SODIUM
     Indication: Antacid therapy
     Dosage: UNK UNK, QD (BEFORE BREAKFAST)
     Route: 048
  10. RENALMIN [Concomitant]
     Indication: Vitamin supplementation
     Dosage: UNK UNK, QD (AFTER DINNER)
     Route: 048

REACTIONS (4)
  - General physical health deterioration [Recovered/Resolved]
  - Platelet count decreased [Recovered/Resolved]
  - Diarrhoea [Recovered/Resolved]
  - Extra dose administered [Not Recovered/Not Resolved]

NARRATIVE: CASE EVENT DATE: 20230101
